FAERS Safety Report 8193708-6 (Version None)
Quarter: 2012Q1

REPORT INFORMATION
  Report Type: 
  Country: None (occurrence: None)
  Receive Date: 20120308
  Receipt Date: 20120228
  Transmission Date: 20120608
  Serious: Yes (Other)
  Sender: FDA-Public Use
  Company Number: NL-JNJFOC-20120214054

PATIENT
  Sex: Female
  Weight: 63 kg

DRUGS (2)
  1. MICONAZOLE NITRATE [Suspect]
     Route: 065
  2. MICONAZOLE NITRATE [Suspect]
     Indication: VULVOVAGINAL CANDIDIASIS
     Route: 065
     Dates: start: 20120204, end: 20120210

REACTIONS (1)
  - BRONCHOSPASM [None]
